FAERS Safety Report 8718072 (Version 2)
Quarter: 2012Q4

REPORT INFORMATION
  Report Type: Spontaneous
  Country: None (occurrence: None)
  Receive Date: 20120726
  Receipt Date: 20120917
  Transmission Date: 20130627
  Serious: Yes (Disabling)
  Sender: FDA-Public Use
  Company Number: AUR-APL-2012-03107

PATIENT
  Age: 72 Year
  Sex: Female
  Weight: 71 kg

DRUGS (4)
  1. TERBINAFINE HYDROCHLORIDE [Suspect]
     Indication: ONYCHOMYCOSIS
     Route: 048
     Dates: start: 20120601, end: 20120618
  2. OMEPRAZOLE [Concomitant]
  3. RALOXIFENE HYDROCHLORIDE [Concomitant]
  4. TOLTERODINE TARTRATE [Concomitant]

REACTIONS (5)
  - ERYTHEMA [None]
  - RASH PUSTULAR [None]
  - SKIN EXFOLIATION [None]
  - PRURITUS [None]
  - INSOMNIA [None]
